FAERS Safety Report 21852788 (Version 3)
Quarter: 2023Q1

REPORT INFORMATION
  Report Type: Other
  Country: BR (occurrence: None)
  Receive Date: 20230112
  Receipt Date: 20230217
  Transmission Date: 20230417
  Serious: Yes (Hospitalization, Other)
  Sender: FDA-Public Use
  Company Number: BR-ROCHE-3262675

PATIENT
  Age: 57 Year
  Sex: Female
  Weight: 77 kg

DRUGS (5)
  1. ACTEMRA [Suspect]
     Active Substance: TOCILIZUMAB
     Indication: Rheumatoid arthritis
     Dosage: MOST RECENT INFUSION WAS PERFORMED ON 17/DEC/2022,
     Route: 042
     Dates: start: 20211122
  2. ACTEMRA [Suspect]
     Active Substance: TOCILIZUMAB
     Route: 042
     Dates: start: 20220222
  3. DIAZEPAM [Concomitant]
     Active Substance: DIAZEPAM
     Indication: Depression
  4. ZOLPIDEM [Concomitant]
     Active Substance: ZOLPIDEM TARTRATE
     Indication: Depression
  5. CODEINE [Concomitant]
     Active Substance: CODEINE
     Indication: Pain

REACTIONS (6)
  - Cerebrovascular accident [Not Recovered/Not Resolved]
  - Diabetes mellitus [Not Recovered/Not Resolved]
  - Hypertension [Not Recovered/Not Resolved]
  - Hyperthyroidism [Not Recovered/Not Resolved]
  - Weight decreased [Not Recovered/Not Resolved]
  - COVID-19 [Recovered/Resolved]

NARRATIVE: CASE EVENT DATE: 20221101
